FAERS Safety Report 17755451 (Version 6)
Quarter: 2022Q2

REPORT INFORMATION
  Report Type: Spontaneous
  Country: US (occurrence: US)
  Receive Date: 20200507
  Receipt Date: 20220616
  Transmission Date: 20220721
  Serious: No
  Sender: FDA-Public Use
  Company Number: US-PFIZER INC-2020182480

PATIENT
  Age: 48 Year
  Sex: Female
  Weight: 87.075 kg

DRUGS (3)
  1. TOVIAZ [Suspect]
     Active Substance: FESOTERODINE FUMARATE
     Indication: Calculus urinary
     Dosage: 8 MG, DAILY
     Route: 048
     Dates: start: 20170616, end: 20170616
  2. TOVIAZ [Suspect]
     Active Substance: FESOTERODINE FUMARATE
     Dosage: 4 MG, 2X/DAY (19FEB2021 PRESCRIBED)
     Route: 048
  3. TOVIAZ [Suspect]
     Active Substance: FESOTERODINE FUMARATE
     Dosage: UNK, 2X/DAY

REACTIONS (5)
  - Off label use [Unknown]
  - Off label use [Unknown]
  - Prescribed overdose [Unknown]
  - Cystitis interstitial [Unknown]
  - Micturition urgency [Unknown]

NARRATIVE: CASE EVENT DATE: 20201022
